FAERS Safety Report 25840437 (Version 1)
Quarter: 2025Q3

REPORT INFORMATION
  Report Type: Spontaneous
  Country: US (occurrence: US)
  Receive Date: 20250924
  Receipt Date: 20250924
  Transmission Date: 20251021
  Serious: Yes (Other)
  Sender: JUBILANT
  Company Number: US-JUBILANT CADISTA PHARMACEUTICALS-2025US001041

PATIENT

DRUGS (3)
  1. ITRACONAZOLE [Suspect]
     Active Substance: ITRACONAZOLE
     Indication: Product used for unknown indication
     Dosage: 200 MG, ONCE PER DAY (NON-FASTED FOR 4 DAYS)
     Route: 048
  2. ITRACONAZOLE [Suspect]
     Active Substance: ITRACONAZOLE
     Dosage: 200 MG, ONCE PER DAY (DAY 5, IN FASTED STATE ?10 H FAST)
     Route: 048
  3. ITRACONAZOLE [Suspect]
     Active Substance: ITRACONAZOLE
     Dosage: 200 MG, ONCE PER DAY (DAY 6 TO 8, NON-FASTED)
     Route: 048

REACTIONS (1)
  - Rhythm idioventricular [Unknown]
